FAERS Safety Report 4329406-6 (Version None)
Quarter: 2004Q1

REPORT INFORMATION
  Report Type: 
  Country: None (occurrence: None)
  Receive Date: 20040331
  Receipt Date: 20040331
  Transmission Date: 20041129
  Serious: Yes (Life-Threatening, Hospitalization, Other)
  Sender: FDA-Public Use
  Company Number: None

PATIENT
  Sex: Male
  Weight: 79.3795 kg

DRUGS (1)
  1. TISSUE PLASMA ACTIVATOR [Suspect]
     Dates: start: 19970815

REACTIONS (4)
  - CEREBRAL HAEMORRHAGE [None]
  - CHEST PAIN [None]
  - COMA [None]
  - THROMBOSIS [None]
